FAERS Safety Report 24662740 (Version 1)
Quarter: 2024Q4

REPORT INFORMATION
  Report Type: Spontaneous
  Country: US (occurrence: US)
  Receive Date: 20241126
  Receipt Date: 20241126
  Transmission Date: 20250114
  Serious: Yes (Disabling)
  Sender: NOVO NORDISK
  Company Number: US-NOVOPROD-1322767

PATIENT

DRUGS (2)
  1. WEGOVY [Suspect]
     Active Substance: SEMAGLUTIDE
     Indication: Product used for unknown indication
     Dosage: UNK
     Route: 058
  2. REXULTI [Concomitant]
     Active Substance: BREXPIPRAZOLE
     Indication: Product used for unknown indication
     Dosage: UNK

REACTIONS (2)
  - Disability [Unknown]
  - Glucose tolerance impaired [Unknown]
